FAERS Safety Report 9494066 (Version 1)
Quarter: 2013Q3

REPORT INFORMATION
  Report Type: Spontaneous
  Country: RO (occurrence: None)
  Receive Date: 20130827
  Receipt Date: 20130827
  Transmission Date: 20140515
  Serious: Yes (Other)
  Sender: FDA-Public Use
  Company Number: 2013P1018647

PATIENT
  Age: 57 Year
  Sex: Female

DRUGS (4)
  1. PREDNISONE [Suspect]
     Indication: GLOMERULONEPHRITIS MEMBRANOPROLIFERATIVE
     Dates: start: 201003, end: 201004
  2. UNSPECIFIED PROTON PUMP INHIBITOR [Suspect]
     Indication: GASTRIC DISORDER
     Dates: start: 201006
  3. UNSPECIFIED PROTON PUMP INHIBITOR [Suspect]
     Indication: PROPHYLAXIS
     Dates: start: 201006
  4. AMLODIPINE [Concomitant]

REACTIONS (23)
  - Diabetes mellitus [None]
  - Acute tonsillitis [None]
  - Nephrotic syndrome [None]
  - Hypoglycaemia [None]
  - Loss of consciousness [None]
  - Haemoglobin decreased [None]
  - Haematocrit decreased [None]
  - General physical health deterioration [None]
  - Oliguria [None]
  - Generalised oedema [None]
  - Hypoproteinaemia [None]
  - Alkalosis [None]
  - Hypokalaemia [None]
  - Nausea [None]
  - Vomiting [None]
  - Abdominal pain [None]
  - Gastrointestinal haemorrhage [None]
  - Gastritis erosive [None]
  - Duodenal ulcer [None]
  - Small intestinal haemorrhage [None]
  - Shock haemorrhagic [None]
  - Strongyloidiasis [None]
  - Decreased appetite [None]
